FAERS Safety Report 7509106-1 (Version None)
Quarter: 2011Q2

REPORT INFORMATION
  Report Type: 
  Country: None (occurrence: None)
  Receive Date: 20110527
  Receipt Date: 20110517
  Transmission Date: 20111010
  Serious: Yes (Hospitalization)
  Sender: FDA-Public Use
  Company Number: US-AMGEN-USASP2011025586

PATIENT
  Age: 45 Year
  Sex: Female

DRUGS (2)
  1. ENBREL [Suspect]
     Indication: RHEUMATOID ARTHRITIS
     Dosage: 50 MG, QWK
     Dates: start: 20091029
  2. TREXALL [Concomitant]
     Dosage: UNK

REACTIONS (4)
  - THERAPEUTIC RESPONSE DECREASED [None]
  - INJECTION SITE PRURITUS [None]
  - INJECTION SITE ERYTHEMA [None]
  - GENITAL HAEMORRHAGE [None]
